FAERS Safety Report 9155267 (Version 3)
Quarter: 2013Q1

REPORT INFORMATION
  Report Type: Spontaneous
  Country: US (occurrence: US)
  Receive Date: 20130311
  Receipt Date: 20130328
  Transmission Date: 20140127
  Serious: Yes (Other)
  Sender: FDA-Public Use
  Company Number: US-PFIZER INC-2013080529

PATIENT
  Age: 72 Year
  Sex: Female
  Weight: 58.05 kg

DRUGS (5)
  1. CENTRUM SILVER WOMEN^S 50+ [Suspect]
     Indication: VITAMIN SUPPLEMENTATION
     Dosage: 1 TABLET, DAILY
     Route: 048
     Dates: start: 201209, end: 20130311
  2. CENTRUM SILVER WOMEN^S 50+ [Suspect]
     Dosage: UNK
  3. ADVIL [Suspect]
     Indication: BONE PAIN
     Dosage: 200 MG TWO TABLETS, EVERY 4 TO 6 HOURS
     Route: 048
     Dates: start: 201210
  4. IBUPROFEN [Suspect]
     Indication: BONE PAIN
     Dosage: 200 MG TWO TABLETS, EVERY 4 TO 6 HOURS
     Route: 048
     Dates: start: 201301
  5. ASPIRIN [Suspect]
     Indication: BONE PAIN
     Dosage: UNK

REACTIONS (6)
  - Choking [Unknown]
  - Drug ineffective [Unknown]
  - Bone pain [Not Recovered/Not Resolved]
  - Rhinorrhoea [Unknown]
  - Pain in jaw [Unknown]
  - Hypersensitivity [Unknown]
